FAERS Safety Report 7649079-4 (Version None)
Quarter: 2011Q3

REPORT INFORMATION
  Report Type: 
  Country: None (occurrence: None)
  Receive Date: 20110802
  Receipt Date: 20110721
  Transmission Date: 20111222
  Serious: Yes (Hospitalization)
  Sender: FDA-Public Use
  Company Number: AU-JNJFOC-20110707053

PATIENT
  Sex: Female
  Weight: 118 kg

DRUGS (28)
  1. TRIAMCINOLONE [Concomitant]
     Route: 061
     Dates: start: 20101213
  2. SILICA GEL [Concomitant]
     Route: 048
     Dates: start: 20080101
  3. FOLIC ACID [Concomitant]
     Route: 048
     Dates: start: 20080617
  4. WARFARIN SODIUM [Concomitant]
     Route: 048
     Dates: start: 20090820
  5. ACETAMINOPHEN [Concomitant]
     Route: 048
     Dates: start: 20020101
  6. IRBESARTAN + HYDROCHLOROTHIAZIDE [Concomitant]
     Route: 048
     Dates: start: 20040101
  7. SPIRIVA [Concomitant]
     Route: 055
     Dates: start: 20070723
  8. PLAQUENIL [Concomitant]
     Route: 048
     Dates: start: 20101214
  9. IRBESARTAN + HYDROCHLOROTHIAZIDE [Concomitant]
     Route: 048
  10. TEMAZE [Concomitant]
     Route: 048
     Dates: start: 20040101
  11. ENDEP [Concomitant]
     Route: 048
     Dates: start: 20040101
  12. CLOTRIMAZOLE [Concomitant]
     Route: 061
     Dates: start: 20101213
  13. METHOTREXATE [Concomitant]
     Route: 048
     Dates: start: 20080519, end: 20090619
  14. METHOTREXATE [Suspect]
     Indication: RHEUMATOID ARTHRITIS
     Route: 048
     Dates: start: 20060529, end: 20080512
  15. GLUCOSAMINE [Concomitant]
     Route: 048
     Dates: start: 20080101
  16. PRISTIQ [Concomitant]
     Route: 048
     Dates: start: 20091113
  17. SENNA [Concomitant]
     Route: 048
  18. ESTRADIOL [Concomitant]
     Route: 048
  19. KELP [Concomitant]
     Route: 048
     Dates: end: 20110622
  20. GOLIMUMAB [Suspect]
     Indication: RHEUMATOID ARTHRITIS
     Route: 058
     Dates: start: 20060619
  21. PREDNISONE [Concomitant]
     Route: 048
     Dates: start: 20070821
  22. CENTRUM MULTIVITAMINS [Concomitant]
     Route: 048
     Dates: start: 20080101
  23. COLGOUT [Concomitant]
     Route: 048
     Dates: start: 20090724
  24. CRANBERRY PILL [Concomitant]
     Route: 048
     Dates: end: 20110622
  25. RABEPRAZOLE SODIUM [Concomitant]
     Route: 048
     Dates: start: 20070905
  26. SYMBICORT [Concomitant]
     Route: 055
     Dates: start: 20090301
  27. GOLIMUMAB [Suspect]
     Route: 058
     Dates: start: 20110321
  28. FISH OIL [Concomitant]
     Route: 048
     Dates: start: 20080101

REACTIONS (1)
  - VULVAL CELLULITIS [None]
